FAERS Safety Report 16071095 (Version 2)
Quarter: 2019Q1

REPORT INFORMATION
  Report Type: Spontaneous
  Country: US (occurrence: US)
  Receive Date: 20190314
  Receipt Date: 20190315
  Transmission Date: 20190418
  Serious: No
  Sender: FDA-Public Use
  Company Number: US-PFIZER INC-2019100838

PATIENT
  Age: 51 Year
  Sex: Female
  Weight: 72.56 kg

DRUGS (1)
  1. HYDROXYZINE PAMOATE. [Suspect]
     Active Substance: HYDROXYZINE PAMOATE
     Indication: TREMOR
     Dosage: 25 MG, 3X/DAY

REACTIONS (1)
  - Drug ineffective [Unknown]
